FAERS Safety Report 7805088-3 (Version None)
Quarter: 2011Q4

REPORT INFORMATION
  Report Type: 
  Country: None (occurrence: None)
  Receive Date: 20111010
  Receipt Date: 20110926
  Transmission Date: 20120403
  Serious: Yes (Hospitalization, Other)
  Sender: FDA-Public Use
  Company Number: NL-BAYER-2011-026740

PATIENT
  Age: 73 Year
  Sex: Male
  Weight: 101.2 kg

DRUGS (10)
  1. ASPIRIN [Suspect]
     Indication: ACUTE CORONARY SYNDROME
     Dates: start: 20100315
  2. PANTOPRAZOLE SODIUM [Concomitant]
  3. PERINDOPRIL ERBUMINE [Concomitant]
  4. RIVAROXABAN [Interacting]
     Indication: ACUTE CORONARY SYNDROME
     Dosage: 2.5 MG, BID
     Route: 048
     Dates: start: 20100315, end: 20110317
  5. ROSUVASTATIN [Concomitant]
  6. ASPIRIN [Interacting]
     Dates: end: 20100311
  7. METOPROLOL TARTRATE [Concomitant]
  8. CLOPIDOGREL [Interacting]
     Dates: end: 20100311
  9. CLOPIDOGREL [Interacting]
     Indication: ACUTE CORONARY SYNDROME
     Dosage: 75 MG, UNK
     Dates: start: 20100315, end: 20110318
  10. AMLODIPINE [Concomitant]

REACTIONS (1)
  - HAEMOGLOBIN DECREASED [None]
